FAERS Safety Report 18971035 (Version 1)
Quarter: 2021Q1

REPORT INFORMATION
  Report Type: Report from Study
  Country: US (occurrence: US)
  Receive Date: 20210305
  Receipt Date: 20210305
  Transmission Date: 20210420
  Serious: Yes (Other)
  Sender: FDA-Public Use
  Company Number: US-AUROBINDO-AUR-APL-2019-078124

PATIENT
  Age: 6 Year
  Sex: Male

DRUGS (2)
  1. PAROXETINE. [Suspect]
     Active Substance: PAROXETINE
     Indication: AFFECT LABILITY
  2. PAROXETINE. [Suspect]
     Active Substance: PAROXETINE
     Indication: OBSESSIVE-COMPULSIVE DISORDER
     Dosage: 10 MILLIGRAM
     Route: 048

REACTIONS (4)
  - Bruxism [Recovered/Resolved]
  - Generalised tonic-clonic seizure [Recovered/Resolved]
  - Dystonia [Recovered/Resolved]
  - Extrapyramidal disorder [Recovered/Resolved]
